FAERS Safety Report 15256973 (Version 1)
Quarter: 2018Q3

REPORT INFORMATION
  Report Type: Spontaneous
  Country: US (occurrence: US)
  Receive Date: 20180808
  Receipt Date: 20180808
  Transmission Date: 20181010
  Serious: No
  Sender: FDA-Public Use
  Company Number: PHEH2018US031819

PATIENT
  Sex: Male

DRUGS (1)
  1. DORZOLAMIDE+TIMOLOL [Suspect]
     Active Substance: DORZOLAMIDE\TIMOLOL
     Indication: PRODUCT USED FOR UNKNOWN INDICATION
     Dosage: 2.23%/0.68%, BID
     Route: 065

REACTIONS (1)
  - Incorrect dose administered [Unknown]
